FAERS Safety Report 23278963 (Version 1)
Quarter: 2023Q4

REPORT INFORMATION
  Report Type: Report from Study
  Country: US (occurrence: US)
  Receive Date: 20231209
  Receipt Date: 20231209
  Transmission Date: 20240110
  Serious: Yes (Other)
  Sender: FDA-Public Use
  Company Number: US-UCBSA-2023036184

PATIENT
  Sex: Female

DRUGS (2)
  1. FINTEPLA [Suspect]
     Active Substance: FENFLURAMINE
     Indication: Lennox-Gastaut syndrome
     Dosage: 3 ML AM 1 ML PM
     Route: 048
     Dates: start: 20220906
  2. FINTEPLA [Suspect]
     Active Substance: FENFLURAMINE
     Dosage: 3 MILLILITER, ONCE DAILY (QD)
     Route: 048
     Dates: start: 20220906, end: 20230623

REACTIONS (2)
  - Seizure [Unknown]
  - Drug ineffective [Unknown]
